FAERS Safety Report 9990515 (Version 1)
Quarter: 2014Q1

REPORT INFORMATION
  Report Type: Spontaneous
  Country: US (occurrence: US)
  Receive Date: 20140310
  Receipt Date: 20140310
  Transmission Date: 20141002
  Serious: No
  Sender: FDA-Public Use
  Company Number: US-PFIZER INC-2014063146

PATIENT
  Age: 78 Year
  Sex: Male

DRUGS (1)
  1. ALDACTONE [Suspect]
     Dosage: UNK

REACTIONS (2)
  - Gynaecomastia [Unknown]
  - Nipple pain [Not Recovered/Not Resolved]
